FAERS Safety Report 4674076-0 (Version None)
Quarter: 2005Q2

REPORT INFORMATION
  Report Type: 
  Country: None (occurrence: None)
  Receive Date: 20050524
  Receipt Date: 20050524
  Transmission Date: 20051028
  Serious: Yes (Hospitalization)
  Sender: FDA-Public Use
  Company Number: None

PATIENT
  Age: 87 Year
  Sex: Male

DRUGS (9)
  1. NAPROXEN [Suspect]
     Indication: PAIN
     Dosage: 500 MG   BID
  2. XANAX [Concomitant]
  3. HYDROCODONE BITARTRATE + ACETAMINOPHEN [Concomitant]
  4. NEXIUM [Concomitant]
  5. UROXATROL [Concomitant]
  6. NEURONTIN [Concomitant]
  7. HYDROXYZINE [Concomitant]
  8. MECLIZINE [Concomitant]
  9. TEGRETOL [Concomitant]

REACTIONS (3)
  - ABDOMINAL PAIN [None]
  - NAUSEA [None]
  - VOMITING [None]
